FAERS Safety Report 5110537-8 (Version None)
Quarter: 2006Q3

REPORT INFORMATION
  Report Type: 
  Country: None (occurrence: None)
  Receive Date: 20060913
  Receipt Date: 20060809
  Transmission Date: 20061208
  Serious: Yes (Other)
  Sender: FDA-Public Use
  Company Number: 2250051-2006-00374

PATIENT
  Sex: 0

DRUGS (2)
  1. RHOGAM [Suspect]
     Indication: PROPHYLAXIS
     Dosage: 300 MICROGRAMS, 1X PP, IM
     Route: 030
     Dates: start: 20051219, end: 20051219
  2. RHOGAM [Suspect]
     Indication: RHESUS INCOMPATIBILITY
     Dosage: 300 MICROGRAMS, 1X PP, IM
     Route: 030
     Dates: start: 20051219, end: 20051219

REACTIONS (1)
  - CHLAMYDIAL INFECTION [None]
